FAERS Safety Report 16956626 (Version 1)
Quarter: 2019Q4

REPORT INFORMATION
  Report Type: Report from Study
  Country: US (occurrence: US)
  Receive Date: 20191024
  Receipt Date: 20191024
  Transmission Date: 20200122
  Serious: Yes (Life-Threatening, Hospitalization)
  Sender: FDA-Public Use
  Company Number: US-MYLANLABS-2019M1099545

PATIENT
  Age: 1 Month
  Sex: Male

DRUGS (1)
  1. METHADONE [Suspect]
     Active Substance: METHADONE HYDROCHLORIDE
     Indication: PRODUCT USED FOR UNKNOWN INDICATION
     Route: 063

REACTIONS (8)
  - Agitation [Recovering/Resolving]
  - Exposure via breast milk [Unknown]
  - Tremor [Recovering/Resolving]
  - Diarrhoea [Recovering/Resolving]
  - Respiratory arrest [Recovering/Resolving]
  - Somnolence [Recovering/Resolving]
  - Lethargy [Recovering/Resolving]
  - Irritability [Recovering/Resolving]
